FAERS Safety Report 8795002 (Version 2)
Quarter: 2013Q4

REPORT INFORMATION
  Report Type: Spontaneous
  Country: US (occurrence: US)
  Receive Date: 20120917
  Receipt Date: 20131031
  Transmission Date: 20140711
  Serious: Yes (Hospitalization)
  Sender: FDA-Public Use
  Company Number: US-009507513-1209USA006070

PATIENT
  Age: 56 Year
  Sex: Male

DRUGS (15)
  1. SAPHRIS [Suspect]
  2. LOVENOX [Suspect]
     Dosage: 120 MG, Q12H
     Route: 058
  3. COUMADIN [Suspect]
     Dosage: 7.5 MG, HS
     Route: 048
  4. NORVASC [Suspect]
  5. CRESTOR [Suspect]
  6. LOPRESSOR [Concomitant]
  7. VITAMINS (UNSPECIFIED) [Concomitant]
  8. NITROGLYCERIN [Concomitant]
  9. PERI-COLACE [Concomitant]
  10. DULCOLAX [Concomitant]
  11. AMBIEN [Concomitant]
  12. ASPIRIN [Concomitant]
  13. MOM (MIDECAMYCIN ACETATE) [Concomitant]
  14. AVALIDE [Concomitant]
  15. PERCOCET [Concomitant]

REACTIONS (5)
  - Oesophagitis [Unknown]
  - Haemorrhage [Unknown]
  - Haematoma [Unknown]
  - Anaemia [Unknown]
  - Culture stool positive [Unknown]
